FAERS Safety Report 20538501 (Version 1)
Quarter: 2022Q1

REPORT INFORMATION
  Report Type: Spontaneous
  Country: CN (occurrence: CN)
  Receive Date: 20220302
  Receipt Date: 20220302
  Transmission Date: 20220423
  Serious: Yes (Hospitalization, Other)
  Sender: FDA-Public Use
  Company Number: CN-BAYER-2021-205459

PATIENT
  Age: 84 Year
  Sex: Female

DRUGS (2)
  1. XARELTO [Suspect]
     Active Substance: RIVAROXABAN
     Indication: Coronary artery disease
     Dosage: 30 MG, QD
     Route: 048
     Dates: start: 20171001, end: 20191030
  2. DIHYDRALAZINE SULFATE\HYDROCHLOROTHIAZIDE\RESERPINE\TRIAMTERENE [Suspect]
     Active Substance: DIHYDRALAZINE SULFATE\HYDROCHLOROTHIAZIDE\RESERPINE\TRIAMTERENE
     Indication: Hypertension
     Dosage: 1 DF, QD
     Route: 048
     Dates: start: 20171001, end: 20191030

REACTIONS (4)
  - Gastric ulcer [Recovering/Resolving]
  - Melaena [Recovered/Resolved]
  - Haematemesis [Recovered/Resolved]
  - Off label use [Unknown]

NARRATIVE: CASE EVENT DATE: 20171001
